FAERS Safety Report 7699710-2 (Version None)
Quarter: 2011Q3

REPORT INFORMATION
  Report Type: 
  Country: None (occurrence: None)
  Receive Date: 20110822
  Receipt Date: 20110810
  Transmission Date: 20111222
  Serious: No
  Sender: FDA-Public Use
  Company Number: US-BIOGENIDEC-2011BI030495

PATIENT
  Age: 74 Year
  Sex: Female

DRUGS (4)
  1. AVONEX [Concomitant]
     Indication: MULTIPLE SCLEROSIS
  2. TYSABRI [Suspect]
     Indication: MULTIPLE SCLEROSIS
     Route: 042
     Dates: start: 20110601, end: 20110601
  3. TYSABRI [Suspect]
     Route: 042
     Dates: start: 20061006, end: 20070103
  4. TYSABRI [Suspect]
     Route: 042
     Dates: start: 20070507, end: 20100210

REACTIONS (1)
  - ABDOMINAL PAIN [None]
